FAERS Safety Report 10956401 (Version 1)
Quarter: 2015Q1

REPORT INFORMATION
  Report Type: Spontaneous
  Country: US (occurrence: None)
  Receive Date: 20150325
  Receipt Date: 20150325
  Transmission Date: 20150721
  Serious: Yes (Other)
  Sender: FDA-Public Use
  Company Number: None

PATIENT
  Age: 53 Year
  Sex: Female

DRUGS (1)
  1. PREDNISOLONE ACETATE 1 % ALLERGAN [Suspect]
     Active Substance: PREDNISOLONE ACETATE
     Indication: CORNEAL TRANSPLANT
     Dosage: 1 DOP INTO RIGHT EYE
     Route: 047
     Dates: start: 20120831, end: 20141229

REACTIONS (3)
  - Complications of transplant surgery [None]
  - Surgical procedure repeated [None]
  - Transplant rejection [None]

NARRATIVE: CASE EVENT DATE: 20140328
